FAERS Safety Report 9120276 (Version 3)
Quarter: 2013Q2

REPORT INFORMATION
  Report Type: Report from Study
  Country: US (occurrence: US)
  Receive Date: 20130226
  Receipt Date: 20130423
  Transmission Date: 20140414
  Serious: No
  Sender: FDA-Public Use
  Company Number: US-VERTEX PHARMACEUTICALS INC.-2013-002635

PATIENT
  Age: 45 Year
  Sex: Female
  Weight: 91 kg

DRUGS (9)
  1. VX-950 (TELAPREVIR) [Suspect]
     Indication: HEPATITIS C
     Dosage: 750 MG, TID
     Route: 048
     Dates: start: 20130219
  2. RIBASPHERE [Suspect]
     Indication: HEPATITIS C
     Dosage: 600 MG, BID
     Route: 048
     Dates: start: 20130219
  3. PEGASYS [Suspect]
     Indication: HEPATITIS C
     Dosage: 180 ?G, WEEKLY
     Route: 058
     Dates: start: 20130219
  4. METOPROLOL [Concomitant]
     Dosage: 25 MG, QD
  5. LEVOTHYROXINE [Concomitant]
     Dosage: 125 ?G, QD
  6. MULTIVITAMIN [Concomitant]
  7. VITAMIN C [Concomitant]
     Dosage: 500 MG, UNK
  8. VITAMIN D [Concomitant]
     Dosage: 1000 UNIT
  9. MILK THISTLE [Concomitant]
     Dosage: 500 MG, QD

REACTIONS (3)
  - Rash [Unknown]
  - Rectal haemorrhage [Unknown]
  - Anorectal discomfort [Unknown]
